FAERS Safety Report 6582861-3 (Version None)
Quarter: 2010Q1

REPORT INFORMATION
  Report Type: 
  Country: None (occurrence: None)
  Receive Date: 20100216
  Receipt Date: 20100121
  Transmission Date: 20100710
  Serious: Yes (Disabling)
  Sender: FDA-Public Use
  Company Number: JP-PFIZER INC-2010016589

PATIENT
  Age: 70 Year
  Sex: Male
  Weight: 66 kg

DRUGS (3)
  1. SUNITINIB MALATE [Suspect]
     Indication: RENAL CELL CARCINOMA
     Dosage: 25 MG, 1X/DAY
     Dates: start: 20091002, end: 20091029
  2. ADALAT CC [Concomitant]
     Dosage: UNK
     Route: 048
     Dates: start: 20091006
  3. CALCIUM POLYSTYRENE SULFONATE [Concomitant]
     Dosage: 75 G, DAILY
     Route: 048
     Dates: start: 20091011, end: 20091020

REACTIONS (2)
  - BLOOD POTASSIUM INCREASED [None]
  - RENAL IMPAIRMENT [None]
